FAERS Safety Report 6664135-5 (Version None)
Quarter: 2010Q2

REPORT INFORMATION
  Report Type: 
  Country: None (occurrence: None)
  Receive Date: 20100401
  Receipt Date: 20100329
  Transmission Date: 20101027
  Serious: Yes (Hospitalization)
  Sender: FDA-Public Use
  Company Number: B0642872A

PATIENT
  Sex: Female
  Weight: 67.5 kg

DRUGS (9)
  1. LAPATINIB [Suspect]
     Dosage: 1250MG PER DAY
     Route: 048
     Dates: start: 20100312, end: 20100319
  2. PACLITAXEL [Suspect]
     Dosage: 140MG WEEKLY
     Route: 042
     Dates: start: 20100312
  3. ASPIRIN [Concomitant]
     Dosage: 100MG PER DAY
  4. METFORMIN (GLUCOPHAGE) [Concomitant]
     Dosage: 500MG THREE TIMES PER DAY
  5. DIAMICRON [Concomitant]
     Dosage: 30MG PER DAY
  6. DIGOXIN [Concomitant]
     Dosage: 125MCG PER DAY
  7. METOPROLOL [Concomitant]
     Dosage: 25MG TWICE PER DAY
  8. GLARGINE [Concomitant]
     Dosage: 12ML PER DAY
  9. FERROGRAD [Concomitant]

REACTIONS (9)
  - ABDOMINAL PAIN [None]
  - ATRIAL FIBRILLATION [None]
  - CONFUSIONAL STATE [None]
  - CONSTIPATION [None]
  - DIARRHOEA [None]
  - LETHARGY [None]
  - NAUSEA [None]
  - NEUTROPENIA [None]
  - VOMITING [None]
